FAERS Safety Report 4731737-2 (Version None)
Quarter: 2005Q3

REPORT INFORMATION
  Report Type: 
  Country: None (occurrence: None)
  Receive Date: 20050802
  Receipt Date: 20050721
  Transmission Date: 20060218
  Serious: Yes (Other)
  Sender: FDA-Public Use
  Company Number: PHEH2005US08077

PATIENT
  Age: 72 Year
  Sex: Female

DRUGS (6)
  1. FEMARA [Suspect]
     Indication: BREAST CANCER
  2. BISOPROLOL W/HYDROCHLOROTHIAZIDE [Concomitant]
     Indication: HYPERTENSION
     Dosage: 10/6.25MG DAILY
     Route: 048
  3. SYNTHROID [Concomitant]
     Indication: HYPOTHYROIDISM
     Dosage: 0.025 MG, QD
  4. CALCIUM W/VITAMIN D NOS [Concomitant]
     Dosage: 500 MG, UNK
  5. MULTI-VITAMINS [Concomitant]
     Dosage: UNK, QD
  6. ADVIL [Concomitant]
     Dosage: UNK, PRN

REACTIONS (3)
  - BLOOD ALKALINE PHOSPHATASE INCREASED [None]
  - BONE DISORDER [None]
  - CHOLELITHIASIS [None]
